FAERS Safety Report 7296150-5 (Version None)
Quarter: 2011Q1

REPORT INFORMATION
  Report Type: 
  Country: None (occurrence: None)
  Receive Date: 20110216
  Receipt Date: 20110202
  Transmission Date: 20110831
  Serious: Yes (Life-Threatening)
  Sender: FDA-Public Use
  Company Number: CA-CELGENEUS-028-21880-10092349

PATIENT
  Sex: Female
  Weight: 61.5 kg

DRUGS (12)
  1. REVLIMID [Suspect]
     Indication: MULTIPLE MYELOMA
     Route: 048
     Dates: start: 20100817
  2. REPLAVITE [Concomitant]
     Route: 065
  3. NORVASC [Concomitant]
     Route: 065
  4. REVLIMID [Suspect]
     Route: 048
     Dates: start: 20110202
  5. ARANESP [Concomitant]
     Route: 065
  6. VIT D [Concomitant]
     Route: 065
  7. DEXAMETHASONE [Suspect]
     Route: 065
     Dates: start: 20101020, end: 20101216
  8. LABETALOL [Concomitant]
     Route: 065
  9. REVLIMID [Suspect]
     Route: 048
     Dates: start: 20101020, end: 20101216
  10. DEXAMETHASONE [Suspect]
     Indication: MULTIPLE MYELOMA
     Route: 065
     Dates: start: 20100817, end: 20100916
  11. AVAPRO [Concomitant]
     Route: 065
  12. LACTULOSE [Concomitant]
     Route: 065

REACTIONS (2)
  - GASTROINTESTINAL ULCER [None]
  - DIARRHOEA [None]
